FAERS Safety Report 6739583-5 (Version None)
Quarter: 2010Q2

REPORT INFORMATION
  Report Type: 
  Country: None (occurrence: None)
  Receive Date: 20100525
  Receipt Date: 20100301
  Transmission Date: 20101027
  Serious: Yes (Other)
  Sender: FDA-Public Use
  Company Number: US-AMGEN-QUU388642

PATIENT
  Sex: Male
  Weight: 135.5 kg

DRUGS (5)
  1. NPLATE [Suspect]
     Indication: DRUG USE FOR UNKNOWN INDICATION
     Route: 058
     Dates: start: 20090605, end: 20090901
  2. CYCLOSPORINE [Concomitant]
     Dates: start: 20070925
  3. NEUPOGEN [Concomitant]
     Dates: start: 20080722
  4. SEPTRA [Concomitant]
     Dates: start: 20090210
  5. AMLODIPINE [Concomitant]
     Dates: start: 20071222

REACTIONS (1)
  - DRUG INEFFECTIVE [None]
